FAERS Safety Report 6651004-X (Version None)
Quarter: 2010Q1

REPORT INFORMATION
  Report Type: 
  Country: None (occurrence: None)
  Receive Date: 20100325
  Receipt Date: 20100316
  Transmission Date: 20100710
  Serious: Yes (Death, Hospitalization)
  Sender: FDA-Public Use
  Company Number: GB-MPIJNJ-2010-01368

PATIENT

DRUGS (7)
  1. VELCADE [Suspect]
     Indication: MULTIPLE MYELOMA
     Dosage: 1.3 MG/M2, UNK
     Route: 042
     Dates: start: 20090908, end: 20091030
  2. ALLOPURINOL [Concomitant]
     Indication: PROPHYLAXIS
     Dosage: 300 MG, UNK
  3. DILTIAZEM HCL [Concomitant]
     Indication: HYPERTENSION
     Dosage: 60 MG, UNK
  4. CLODRONATE DISODIUM [Concomitant]
     Indication: PROPHYLAXIS
     Dosage: 1.6 G, UNK
  5. BENDROFLUMETHIAZIDE [Concomitant]
     Indication: HYPERTENSION
     Dosage: UNK
  6. RANITIDINE [Concomitant]
     Indication: PROPHYLAXIS
     Dosage: 150 MG, UNK
  7. DEXAMETHASONE [Concomitant]
     Indication: MULTIPLE MYELOMA
     Dosage: 20 MG, UNK

REACTIONS (2)
  - CEREBROVASCULAR ACCIDENT [None]
  - PNEUMONITIS [None]
